FAERS Safety Report 5173165-4 (Version None)
Quarter: 2006Q4

REPORT INFORMATION
  Report Type: 
  Country: None (occurrence: None)
  Receive Date: 20061208
  Receipt Date: 20061208
  Transmission Date: 20070319
  Serious: Yes (Hospitalization)
  Sender: FDA-Public Use
  Company Number: None

PATIENT
  Sex: Male
  Weight: 41 kg

DRUGS (6)
  1. PHENYTOIN [Suspect]
     Indication: GRAND MAL CONVULSION
     Dosage: 200 MG TID PO
     Route: 048
     Dates: start: 20061120, end: 20061203
  2. PHENYTOIN [Suspect]
     Indication: GRAND MAL CONVULSION
     Dosage: 200 MG TID PO
     Route: 048
     Dates: start: 19981001
  3. PHENOBARBITAL TAB [Concomitant]
  4. PANTOPRAZOLE SODIUM [Concomitant]
  5. SENNA [Concomitant]
  6. FLUTICASONE NASAL SPRAY [Concomitant]

REACTIONS (5)
  - ASTHENIA [None]
  - DEHYDRATION [None]
  - DRUG TOXICITY [None]
  - LETHARGY [None]
  - PYREXIA [None]
